FAERS Safety Report 7608218-1 (Version None)
Quarter: 2011Q3

REPORT INFORMATION
  Report Type: 
  Country: None (occurrence: None)
  Receive Date: 20110714
  Receipt Date: 20110630
  Transmission Date: 20111222
  Serious: Yes (Hospitalization, Other)
  Sender: FDA-Public Use
  Company Number: US-AMGEN-USASP2011034045

PATIENT
  Age: 55 Year
  Sex: Male

DRUGS (2)
  1. ENBREL [Suspect]
     Indication: RHEUMATOID ARTHRITIS
     Dosage: 50 MG, QWK
     Dates: start: 20041001, end: 20110301
  2. ENBREL [Suspect]
     Indication: PSORIASIS

REACTIONS (4)
  - ARTHRALGIA [None]
  - PAIN [None]
  - DEHYDRATION [None]
  - BEDRIDDEN [None]
